FAERS Safety Report 8339438-9 (Version None)
Quarter: 2012Q2

REPORT INFORMATION
  Report Type: 
  Country: None (occurrence: None)
  Receive Date: 20120507
  Receipt Date: 20120427
  Transmission Date: 20120825
  Serious: Yes (Hospitalization, Other)
  Sender: FDA-Public Use
  Company Number: CA-UCBSA-056422

PATIENT
  Age: 15 Year
  Sex: Female

DRUGS (4)
  1. ELAVIL [Concomitant]
     Route: 048
  2. CIMZIA [Suspect]
     Indication: CROHN'S DISEASE
     Dosage: RECEIVED TWO INJECTIONS ONLY, FIRST ON 03/APR/2012 AND SECOND ON 18/APR/2012
     Route: 058
     Dates: start: 20120403, end: 20120418
  3. TYLENOL EXTRA-FORT [Concomitant]
     Indication: PAIN
     Route: 048
  4. IRON [Concomitant]
     Indication: ANAEMIA
     Route: 048

REACTIONS (1)
  - ARTHRITIS [None]
